FAERS Safety Report 5404241-6 (Version None)
Quarter: 2007Q3

REPORT INFORMATION
  Report Type: 
  Country: None (occurrence: None)
  Receive Date: 20070802
  Receipt Date: 20070723
  Transmission Date: 20080115
  Serious: Yes (Other)
  Sender: FDA-Public Use
  Company Number: GB-ROCHE-508991

PATIENT
  Sex: Male

DRUGS (8)
  1. XENICAL [Suspect]
     Indication: OBESITY
     Route: 048
     Dates: start: 20070720, end: 20070722
  2. ASPIRIN [Concomitant]
     Route: 048
  3. DILTIAZEM [Concomitant]
     Route: 048
  4. ISOSORBIDE MONONITRATE [Concomitant]
     Route: 048
  5. CANDESARTAN CILEXETIL [Concomitant]
     Route: 048
  6. ATENOLOL [Concomitant]
  7. BUMETANIDE [Concomitant]
  8. SIMVASTATIN [Concomitant]

REACTIONS (6)
  - CHEST DISCOMFORT [None]
  - DEPRESSED MOOD [None]
  - DIZZINESS [None]
  - NAUSEA [None]
  - SYNCOPE [None]
  - VOMITING [None]
